FAERS Safety Report 7301756 (Version 5)
Quarter: 2012Q4

REPORT INFORMATION
  Report Type: Report from Study
  Country: FR (occurrence: FR)
  Receive Date: 20100302
  Receipt Date: 20121005
  Transmission Date: 20130627
  Serious: Yes (Hospitalization)
  Sender: FDA-Public Use
  Company Number: PHHO2010FR02968

PATIENT
  Age: 24 Year
  Sex: Male

DRUGS (7)
  1. CERTICAN [Suspect]
     Indication: RENAL TRANSPLANT
     Dosage: 1.5 mg, BID
     Route: 048
     Dates: start: 20100215, end: 20100226
  2. CERTICAN [Suspect]
     Dosage: NO TREATMENT
     Dates: start: 20100227, end: 20100308
  3. CERTICAN [Suspect]
     Dosage: UNK
     Route: 048
     Dates: start: 20100309
  4. MYCOPHENOLIC ACID [Suspect]
     Indication: RENAL TRANSPLANT
     Dosage: UNK
     Route: 048
     Dates: start: 20091103, end: 20100226
  5. MYCOPHENOLIC ACID [Suspect]
     Dosage: UNK
     Route: 048
     Dates: start: 20100309
  6. NEORAL [Suspect]
     Indication: RENAL TRANSPLANT
     Dosage: 85
     Route: 048
     Dates: start: 20091103, end: 20100223
  7. SOLUPRED [Concomitant]
     Indication: RENAL TRANSPLANT
     Dosage: UNK
     Route: 048
     Dates: start: 20091103

REACTIONS (2)
  - Febrile neutropenia [Recovered/Resolved]
  - Pneumocystis jiroveci pneumonia [Recovered/Resolved]
